FAERS Safety Report 24559732 (Version 3)
Quarter: 2024Q4

REPORT INFORMATION
  Report Type: Spontaneous
  Country: CA (occurrence: CA)
  Receive Date: 20241029
  Receipt Date: 20241113
  Transmission Date: 20250115
  Serious: Yes (Other)
  Sender: CELLTRION
  Company Number: CA-PFIZER INC-202400179399

PATIENT

DRUGS (7)
  1. INFLECTRA [Suspect]
     Active Substance: INFLIXIMAB-DYYB
     Indication: Crohn^s disease
     Dosage: 500 MG, WEEK 0, 2, 6, THEN EVERY 8 WEEKS (WEEK 0)
     Route: 042
     Dates: start: 20240718
  2. INFLECTRA [Suspect]
     Active Substance: INFLIXIMAB-DYYB
     Dosage: 500 MG, 0, 2, 6, THEN EVERY 8 WEEKS (WEEK 2)
     Route: 042
     Dates: start: 20240801, end: 20240801
  3. INFLECTRA [Suspect]
     Active Substance: INFLIXIMAB-DYYB
     Dosage: 500 MG, 0, 2, 6, THEN EVERY 8 WEEKS (WEEK 6)
     Route: 042
     Dates: start: 20240826, end: 20240826
  4. INFLECTRA [Suspect]
     Active Substance: INFLIXIMAB-DYYB
     Dosage: 500 MG, EVERY 8 WEEKS (WEEK 0,2,6 THEN Q 8 WEEKS )
     Route: 042
     Dates: start: 20241021, end: 20241021
  5. MESALAMINE [Concomitant]
     Active Substance: MESALAMINE
     Dosage: UNK
  6. CIPROFLOXACIN [Concomitant]
     Active Substance: CIPROFLOXACIN
     Dosage: 500 MG
  7. METRONIDAZOLE [Concomitant]
     Active Substance: METRONIDAZOLE
     Dosage: 250 MG

REACTIONS (9)
  - Oxygen saturation decreased [Unknown]
  - Heart rate increased [Unknown]
  - Dyspnoea [Unknown]
  - Feeling hot [Unknown]
  - Feeling abnormal [Unknown]
  - Blood pressure diastolic decreased [Unknown]
  - Blood pressure fluctuation [Unknown]
  - Drug specific antibody present [Unknown]
  - Off label use [Unknown]

NARRATIVE: CASE EVENT DATE: 20240101
